FAERS Safety Report 9101172 (Version 1)
Quarter: 2013Q1

REPORT INFORMATION
  Report Type: Report from Study
  Country: BR (occurrence: BR)
  Receive Date: 20130218
  Receipt Date: 20130218
  Transmission Date: 20140127
  Serious: Yes (Other)
  Sender: FDA-Public Use
  Company Number: BR-ROCHE-1108786

PATIENT
  Sex: Female
  Weight: 95 kg

DRUGS (13)
  1. RITUXIMAB [Suspect]
     Indication: SCLERODERMA
     Route: 042
     Dates: start: 20110608
  2. ATROPINE [Concomitant]
  3. PURAN T4 [Concomitant]
     Route: 065
  4. OMEPRAZOLE [Concomitant]
     Route: 065
  5. RIVOTRIL [Concomitant]
  6. ENALAPRIL [Concomitant]
     Route: 065
  7. BROMOPRIDE [Concomitant]
  8. ALENIA (BRAZIL) [Concomitant]
     Route: 065
  9. BONALON [Concomitant]
  10. PROCIMAX [Concomitant]
     Route: 065
  11. CLONAZEPAM [Concomitant]
  12. AMLODIN [Concomitant]
     Route: 065
  13. GLIFAGE [Concomitant]
     Route: 065

REACTIONS (8)
  - Dyspnoea [Recovered/Resolved]
  - Arthralgia [Not Recovered/Not Resolved]
  - Pain [Not Recovered/Not Resolved]
  - Mass [Not Recovered/Not Resolved]
  - Spinal pain [Recovered/Resolved]
  - Pain in extremity [Recovering/Resolving]
  - Diabetes mellitus [Not Recovered/Not Resolved]
  - Hypertension [Not Recovered/Not Resolved]
